FAERS Safety Report 24196159 (Version 3)
Quarter: 2024Q3

REPORT INFORMATION
  Report Type: Spontaneous
  Country: US (occurrence: US)
  Receive Date: 20240809
  Receipt Date: 20240927
  Transmission Date: 20241017
  Serious: Yes (Hospitalization)
  Sender: Unknown Manufacturer
  Company Number: US-THERATECHNOLOGIES INC.-2024-THE-IBA-000292

PATIENT

DRUGS (3)
  1. TROGARZO [Suspect]
     Active Substance: IBALIZUMAB-UIYK
     Indication: HIV infection
     Dosage: UNK
     Route: 042
     Dates: start: 202210, end: 202210
  2. TROGARZO [Suspect]
     Active Substance: IBALIZUMAB-UIYK
     Indication: Pathogen resistance
     Dosage: 800 MG, EVERY 2 WEEKS
     Route: 042
     Dates: start: 20221103, end: 20230518
  3. TROGARZO [Suspect]
     Active Substance: IBALIZUMAB-UIYK
     Dosage: 800 MG, IVP, EVERY 2 WEEKS
     Route: 042

REACTIONS (3)
  - Pneumonia [Not Recovered/Not Resolved]
  - Dyspnoea [Not Recovered/Not Resolved]
  - Dyspnoea [Recovered/Resolved]

NARRATIVE: CASE EVENT DATE: 20240726
